FAERS Safety Report 21816524 (Version 1)
Quarter: 2023Q1

REPORT INFORMATION
  Report Type: Spontaneous
  Country: IN (occurrence: IN)
  Receive Date: 20230104
  Receipt Date: 20230104
  Transmission Date: 20230417
  Serious: Yes (Other)
  Sender: FDA-Public Use
  Company Number: IN-MYLANLABS-2022M1142744

PATIENT
  Age: 18 Year
  Sex: Male

DRUGS (10)
  1. URSODIOL [Suspect]
     Active Substance: URSODIOL
     Indication: Hepatitis A
     Dosage: 300 MILLIGRAM, TID (THREE TIMES A DAY)
     Route: 065
  2. URSODIOL [Suspect]
     Active Substance: URSODIOL
     Indication: Hepatitis cholestatic
  3. ONDANSETRON [Suspect]
     Active Substance: ONDANSETRON
     Indication: Hepatitis cholestatic
     Dosage: 4 MILLIGRAM, TID (THRICE DAILY)
     Route: 065
  4. ONDANSETRON [Suspect]
     Active Substance: ONDANSETRON
     Indication: Hepatitis A
  5. ORNITHINE ASPARTATE [Suspect]
     Active Substance: ORNITHINE ASPARTATE
     Indication: Hepatitis cholestatic
     Dosage: 5 GRAM, BID (SACHETS)
     Route: 065
  6. ORNITHINE ASPARTATE [Suspect]
     Active Substance: ORNITHINE ASPARTATE
     Indication: Hepatitis A
  7. HYDROXYZINE [Suspect]
     Active Substance: HYDROXYZINE HYDROCHLORIDE
     Indication: Hepatitis cholestatic
     Dosage: 25 MILLIGRAM, BID
     Route: 065
  8. HYDROXYZINE [Suspect]
     Active Substance: HYDROXYZINE HYDROCHLORIDE
     Indication: Hepatitis A
  9. CHOLESTYRAMINE [Suspect]
     Active Substance: CHOLESTYRAMINE
     Indication: Hepatitis cholestatic
     Dosage: 5 GRAM, TID (SACHET; THRICE A DAY; BEFORE MEALS)
     Route: 065
  10. CHOLESTYRAMINE [Suspect]
     Active Substance: CHOLESTYRAMINE
     Indication: Hepatitis A

REACTIONS (1)
  - Drug ineffective [Unknown]
